FAERS Safety Report 8345988-1 (Version None)
Quarter: 2012Q2

REPORT INFORMATION
  Report Type: 
  Country: None (occurrence: None)
  Receive Date: 20120509
  Receipt Date: 20120507
  Transmission Date: 20120825
  Serious: No
  Sender: FDA-Public Use
  Company Number: US-PFIZER INC-2012111398

PATIENT
  Sex: Female
  Weight: 77.6 kg

DRUGS (6)
  1. VICODIN [Suspect]
     Indication: MUSCULOSKELETAL DISCOMFORT
     Dosage: 5/500 MG, AS NEEDED
  2. SUTENT [Suspect]
     Indication: METASTASES TO LUNG
  3. LOSARTAN POTASSIUM [Concomitant]
     Indication: HYPERTENSION
     Dosage: 25 MG, 2X/DAY
  4. SUTENT [Suspect]
     Indication: METASTATIC RENAL CELL CARCINOMA
     Dosage: 25 MG, DAILY
     Dates: start: 20110101
  5. VICODIN [Suspect]
     Indication: PAIN IN EXTREMITY
  6. CARVEDILOL [Concomitant]
     Indication: HYPERTENSION
     Dosage: 12.5 MG, 2X/DAY

REACTIONS (4)
  - ALOPECIA [None]
  - DRUG INEFFECTIVE [None]
  - JOINT SWELLING [None]
  - PAIN IN EXTREMITY [None]
